FAERS Safety Report 20667180 (Version 1)
Quarter: 2022Q2

REPORT INFORMATION
  Report Type: Other
  Country: FR (occurrence: FR)
  Receive Date: 20220404
  Receipt Date: 20220404
  Transmission Date: 20220720
  Serious: Yes (Hospitalization)
  Sender: FDA-Public Use
  Company Number: None

PATIENT

DRUGS (2)
  1. TRAMADOL [Suspect]
     Active Substance: TRAMADOL
     Indication: Procedural pain
     Dosage: 200 MILLIGRAM, QD
     Route: 048
     Dates: start: 20220304, end: 20220310
  2. KETOPROFEN [Suspect]
     Active Substance: KETOPROFEN
     Indication: Procedural pain
     Dosage: 2 DOSAGE FORM, QD
     Route: 048
     Dates: start: 20220304, end: 20220307

REACTIONS (1)
  - Pancreatitis acute [Recovering/Resolving]

NARRATIVE: CASE EVENT DATE: 20220310
